FAERS Safety Report 13079042 (Version 1)
Quarter: 2017Q1

REPORT INFORMATION
  Report Type: Other
  Country: GB (occurrence: US)
  Receive Date: 20170102
  Receipt Date: 20170102
  Transmission Date: 20170428
  Serious: Yes (Hospitalization)
  Sender: FDA-Public Use
  Company Number: GB-ALSI-201600378

PATIENT
  Age: 17 Year
  Sex: Male

DRUGS (2)
  1. MDMA HYDROCHLORIDE [Concomitant]
  2. NITROUS OXIDE. [Suspect]
     Active Substance: NITROUS OXIDE

REACTIONS (4)
  - Pneumomediastinum [Recovered/Resolved]
  - Substance abuse [Unknown]
  - Subcutaneous emphysema [Recovered/Resolved]
  - Barotrauma [Recovered/Resolved]
